FAERS Safety Report 5052820-0 (Version None)
Quarter: 2006Q3

REPORT INFORMATION
  Report Type: 
  Country: None (occurrence: None)
  Receive Date: 20060717
  Receipt Date: 20060619
  Transmission Date: 20061208
  Serious: Yes (Other)
  Sender: FDA-Public Use
  Company Number: 2006AP02825

PATIENT
  Age: 71 Year
  Sex: Male
  Weight: 69.4 kg

DRUGS (12)
  1. MEROPEN [Suspect]
     Indication: PNEUMONIA
     Route: 041
     Dates: start: 20050831, end: 20050910
  2. MEROPEN [Suspect]
     Route: 041
     Dates: start: 20050915, end: 20050928
  3. WARFARIN SODIUM [Interacting]
     Indication: ARTERIAL THROMBOSIS
     Route: 048
     Dates: start: 20050828, end: 20050902
  4. WARFARIN SODIUM [Interacting]
     Route: 048
     Dates: start: 20050903, end: 20050904
  5. WARFARIN SODIUM [Interacting]
     Route: 048
     Dates: start: 20050905, end: 20050905
  6. WARFARIN SODIUM [Interacting]
     Route: 048
     Dates: start: 20050914, end: 20050917
  7. WARFARIN SODIUM [Interacting]
     Route: 048
     Dates: start: 20050918, end: 20050923
  8. MINOPEN [Suspect]
     Indication: PNEUMONIA
     Route: 041
     Dates: start: 20050902, end: 20050906
  9. SULBACTAM SODIUM-AMPICILLIN SODIUM [Concomitant]
     Indication: PNEUMONIA
     Route: 041
     Dates: start: 20050830, end: 20050830
  10. IMMUNE GLOBULIN INTRAVENOUS (HUMAN) [Concomitant]
     Indication: PNEUMONIA
     Route: 041
     Dates: start: 20050831, end: 20050902
  11. VANCOMYCIN [Concomitant]
     Indication: PNEUMONIA
     Route: 041
     Dates: start: 20050901, end: 20050901
  12. RIMACTANE [Concomitant]
     Indication: ATYPICAL MYCOBACTERIAL INFECTION
     Route: 048
     Dates: start: 20050923

REACTIONS (3)
  - DRUG INTERACTION POTENTIATION [None]
  - INTERNATIONAL NORMALISED RATIO FLUCTUATION [None]
  - MYCOBACTERIUM AVIUM COMPLEX INFECTION [None]
